FAERS Safety Report 9523912 (Version 2)
Quarter: 2013Q4

REPORT INFORMATION
  Report Type: Spontaneous
  Country: US (occurrence: None)
  Receive Date: 20130912
  Receipt Date: 20131021
  Transmission Date: 20140711
  Serious: Yes (Other)
  Sender: FDA-Public Use
  Company Number: 2013PL000139

PATIENT
  Age: 26 Year
  Sex: Female
  Weight: 76.2 kg

DRUGS (4)
  1. LOTRONEX [Suspect]
     Indication: IRRITABLE BOWEL SYNDROME
     Dates: start: 20130416, end: 20130815
  2. AMITRIPTYLINE [Concomitant]
  3. GABAPENTIN [Concomitant]
  4. LOMOTIL [Concomitant]

REACTIONS (4)
  - Colitis ischaemic [None]
  - Diarrhoea [None]
  - Haematochezia [None]
  - Gastrointestinal erosion [None]
